FAERS Safety Report 25929990 (Version 1)
Quarter: 2025Q4

REPORT INFORMATION
  Report Type: Report from Study
  Country: US (occurrence: US)
  Receive Date: 20251016
  Receipt Date: 20251016
  Transmission Date: 20260118
  Serious: Yes (Other)
  Sender: ALEXION PHARMACEUTICALS
  Company Number: US-ASTRAZENECA-202505USA016007US

PATIENT
  Sex: Female
  Weight: 138.6 kg

DRUGS (3)
  1. BENRALIZUMAB [Suspect]
     Active Substance: BENRALIZUMAB
     Indication: Asthma
     Dosage: 30 MILLIGRAM, Q8W
     Dates: start: 20250220
  2. BENRALIZUMAB [Suspect]
     Active Substance: BENRALIZUMAB
  3. CRESTOR [Suspect]
     Active Substance: ROSUVASTATIN CALCIUM
     Dosage: UNK
     Route: 065

REACTIONS (8)
  - Nasal congestion [Unknown]
  - Allergy to plants [Unknown]
  - Lacrimation increased [Unknown]
  - Respiration abnormal [Unknown]
  - Drug ineffective [Unknown]
  - Type 2 diabetes mellitus [Unknown]
  - Bipolar disorder [Unknown]
  - Drug abuse [Unknown]
